FAERS Safety Report 24550131 (Version 3)
Quarter: 2025Q2

REPORT INFORMATION
  Report Type: Report from Study
  Country: CA (occurrence: CA)
  Receive Date: 20241025
  Receipt Date: 20250515
  Transmission Date: 20250717
  Serious: Yes (Other)
  Sender: TAKEDA
  Company Number: CA-TAKEDA-2024TUS072113

PATIENT
  Age: 66 Year
  Sex: Male

DRUGS (4)
  1. VEDOLIZUMAB [Suspect]
     Active Substance: VEDOLIZUMAB
     Indication: Crohn^s disease
  2. VEDOLIZUMAB [Suspect]
     Active Substance: VEDOLIZUMAB
     Dosage: 300 MILLIGRAM, Q4WEEKS
     Dates: start: 20241024, end: 20250508
  3. PREDNISONE [Concomitant]
     Active Substance: PREDNISONE
  4. RINVOQ [Concomitant]
     Active Substance: UPADACITINIB

REACTIONS (10)
  - Crohn^s disease [Unknown]
  - Off label use [Unknown]
  - Diarrhoea [Unknown]
  - Abdominal hernia [Unknown]
  - Mouth ulceration [Unknown]
  - Fistula [Unknown]
  - Frequent bowel movements [Unknown]
  - Malaise [Unknown]
  - Abdominal pain [Unknown]
  - Arthralgia [Unknown]

NARRATIVE: CASE EVENT DATE: 20241024
